FAERS Safety Report 4343696-5 (Version None)
Quarter: 2004Q2

REPORT INFORMATION
  Report Type: 
  Country: None (occurrence: None)
  Receive Date: 20040419
  Receipt Date: 20040405
  Transmission Date: 20050107
  Serious: Yes (Hospitalization, Other)
  Sender: FDA-Public Use
  Company Number: US-JNJFOC-20040400757

PATIENT
  Age: 73 Year
  Sex: Male
  Weight: 68.0396 kg

DRUGS (15)
  1. INFLIXIMAB (INFLIXIMAB, RECOMBINANT) LYOPHILIZED POWDER [Suspect]
     Indication: RHEUMATOID ARTHRITIS
     Dosage: INTRAVENOUS
     Route: 042
     Dates: start: 20020813
  2. INFLIXIMAB (INFLIXIMAB, RECOMBINANT) LYOPHILIZED POWDER [Suspect]
     Indication: RHEUMATOID ARTHRITIS
     Dosage: INTRAVENOUS
     Route: 042
     Dates: start: 20031215
  3. ASPIRIN [Concomitant]
  4. ATCAND (CANDESARTAN CILEXETIL) [Concomitant]
  5. GLIPIZIDE [Concomitant]
  6. CYTOXAN [Concomitant]
  7. SUCRALFATE [Concomitant]
  8. ADVAIR (SERETIDE MITE) [Concomitant]
  9. ACTONEL [Concomitant]
  10. TYLENOL PM (TYLENOL PM) TABLETS [Concomitant]
  11. ZETIA (ALL OTHER NON-THERAPEUTIC PRODUCTS) [Concomitant]
  12. CALCIUM (CALCIUM) [Concomitant]
  13. NORVASC [Concomitant]
  14. MULTIVITAMIN [Concomitant]
  15. FISH OIL (FISH OIL) [Concomitant]

REACTIONS (5)
  - ATRIOVENTRICULAR BLOCK COMPLETE [None]
  - CARDIAC FAILURE CONGESTIVE [None]
  - DILATATION ATRIAL [None]
  - INAPPROPRIATE ANTIDIURETIC HORMONE SECRETION [None]
  - SICK SINUS SYNDROME [None]
